FAERS Safety Report 6616552-7 (Version None)
Quarter: 2010Q1

REPORT INFORMATION
  Report Type: 
  Country: None (occurrence: None)
  Receive Date: 20100305
  Receipt Date: 20100222
  Transmission Date: 20100710
  Serious: Yes (Other)
  Sender: FDA-Public Use
  Company Number: US-PFIZER INC-2010023849

PATIENT
  Age: 57 Year
  Sex: Female

DRUGS (2)
  1. NEURONTIN [Suspect]
     Indication: TRIGEMINAL NEURALGIA
     Dosage: 10400 MG DIVIDED INTO 4 DOSES PER DAY
     Route: 048
  2. TRILEPTAL [Interacting]
     Dosage: UNK
     Dates: end: 20100218

REACTIONS (3)
  - DRUG ADMINISTRATION ERROR [None]
  - DRUG INTERACTION [None]
  - HYPONATRAEMIA [None]
